FAERS Safety Report 15555669 (Version 1)
Quarter: 2018Q4

REPORT INFORMATION
  Report Type: Spontaneous
  Country: RU (occurrence: RU)
  Receive Date: 20181026
  Receipt Date: 20181026
  Transmission Date: 20190205
  Serious: Yes (Life-Threatening)
  Sender: FDA-Public Use
  Company Number: PHHY2018RU138512

PATIENT
  Age: 19 Year
  Sex: Female
  Weight: 117 kg

DRUGS (7)
  1. TRANEXAM [Concomitant]
     Active Substance: TRANEXAMIC ACID
     Indication: DRUG THERAPY
     Dosage: UNK
     Route: 042
     Dates: start: 20180614
  2. PROPOFOL LIPURO [Concomitant]
     Active Substance: PROPOFOL
     Indication: ANAESTHESIA
     Dosage: UNK
     Route: 042
     Dates: start: 20180614
  3. RELANIUM (DIAZEPAM) [Concomitant]
     Active Substance: DIAZEPAM
     Indication: SEDATION
     Dosage: UNK
     Route: 042
     Dates: start: 20180714
  4. KETOPROFEN. [Concomitant]
     Active Substance: KETOPROFEN
     Indication: POSTOPERATIVE ANALGESIA
     Dosage: UNK
     Route: 030
     Dates: start: 20180614
  5. LENDACIN [Suspect]
     Active Substance: CEFTRIAXONE SODIUM
     Indication: ANTIBIOTIC PROPHYLAXIS
     Dosage: 1 G, QD
     Route: 042
     Dates: start: 20180614, end: 20180614
  6. FENTANYL. [Concomitant]
     Active Substance: FENTANYL
     Indication: ANAESTHESIA
     Dosage: UNK
     Route: 042
     Dates: start: 20180614
  7. BIFIDUMBACTERIN [Concomitant]
     Active Substance: BIFIDOBACTERIUM BIFIDUM
     Indication: ANTIBIOTIC PROPHYLAXIS
     Dosage: UNK (PER OS)
     Route: 048
     Dates: start: 20180614

REACTIONS (4)
  - Blood pressure decreased [Recovering/Resolving]
  - Anaphylactic shock [Recovering/Resolving]
  - Abdominal pain upper [Recovering/Resolving]
  - Salivary hypersecretion [Recovering/Resolving]

NARRATIVE: CASE EVENT DATE: 20180614
